FAERS Safety Report 19660138 (Version 1)
Quarter: 2021Q3

REPORT INFORMATION
  Report Type: Spontaneous
  Country: US (occurrence: US)
  Receive Date: 20210804
  Receipt Date: 20210804
  Transmission Date: 20211014
  Serious: Yes (Death)
  Sender: FDA-Public Use
  Company Number: None

PATIENT
  Sex: Male

DRUGS (7)
  1. PREDNISONE TAB [Concomitant]
     Active Substance: PREDNISONE
  2. PROLIA [Concomitant]
     Active Substance: DENOSUMAB
  3. TIRAMCINOLONE ACETONIDE [Concomitant]
  4. TOBRAMYCIN 300MG/5ML TOBI GEQ [Suspect]
     Active Substance: TOBRAMYCIN
     Indication: BRONCHIECTASIS
     Dosage: ?          OTHER DOSE:300MG/5ML;?
     Route: 055
     Dates: start: 20210610
  5. DEXAMETHASONE. [Concomitant]
     Active Substance: DEXAMETHASONE
  6. VITAMIN D3 CAP [Concomitant]
  7. NAPROXEN TAB [Concomitant]

REACTIONS (1)
  - Death [None]
